FAERS Safety Report 25042861 (Version 1)
Quarter: 2025Q1

REPORT INFORMATION
  Report Type: Report from Study
  Country: JP (occurrence: JP)
  Receive Date: 20250305
  Receipt Date: 20250305
  Transmission Date: 20250408
  Serious: Yes (Death)
  Sender: SHIONOGI
  Company Number: JP-shionogi-202500002484

PATIENT
  Age: 77 Year
  Sex: Male
  Weight: 47.1 kg

DRUGS (12)
  1. CEFIDEROCOL [Suspect]
     Active Substance: CEFIDEROCOL
     Indication: Pneumonia
     Route: 041
     Dates: start: 20240921, end: 20241003
  2. PREDONINE [Concomitant]
     Active Substance: PREDNISOLONE
     Indication: Pneumonia
     Route: 048
  3. CEFEPIME HYDROCHLORIDE [Concomitant]
     Active Substance: CEFEPIME HYDROCHLORIDE
     Indication: Pneumonia
     Route: 065
     Dates: start: 20240909, end: 20240920
  4. AMIKACIN SULFATE [Concomitant]
     Active Substance: AMIKACIN SULFATE
     Indication: Pneumonia
     Route: 065
     Dates: start: 20240917, end: 20240920
  5. VANCOMYCIN HYDROCHLORIDE [Concomitant]
     Active Substance: VANCOMYCIN HYDROCHLORIDE
     Indication: Pneumonia
     Route: 065
     Dates: start: 20240910, end: 20241010
  6. NOXAFIL [Concomitant]
     Active Substance: POSACONAZOLE
     Indication: Pneumonia
     Route: 048
  7. TRAMADOL HYDROCHLORIDE [Concomitant]
     Active Substance: TRAMADOL HYDROCHLORIDE
     Indication: Pneumonia
     Route: 048
  8. ELOBIXIBAT [Concomitant]
     Active Substance: ELOBIXIBAT
     Indication: Pneumonia
     Route: 048
  9. FEBUXOSTAT [Concomitant]
     Active Substance: FEBUXOSTAT
     Indication: Pneumonia
     Route: 048
  10. ORYCTOLAGUS CUNICULUS SKIN [Concomitant]
     Active Substance: ORYCTOLAGUS CUNICULUS SKIN
     Indication: Pneumonia
     Route: 048
  11. THEOPHYLLINE [Concomitant]
     Active Substance: THEOPHYLLINE
     Indication: Pneumonia
     Route: 048
  12. URSODIOL [Concomitant]
     Active Substance: URSODIOL
     Indication: Pneumonia
     Route: 048

REACTIONS (1)
  - Myelodysplastic syndrome [Fatal]

NARRATIVE: CASE EVENT DATE: 20241010
